FAERS Safety Report 6714007-2 (Version None)
Quarter: 2010Q2

REPORT INFORMATION
  Report Type: 
  Country: None (occurrence: None)
  Receive Date: 20100506
  Receipt Date: 20100427
  Transmission Date: 20101027
  Serious: Yes (Hospitalization)
  Sender: FDA-Public Use
  Company Number: US-ALEXION-A201000307

PATIENT
  Sex: Male

DRUGS (9)
  1. SOLIRIS [Suspect]
     Indication: PAROXYSMAL NOCTURNAL HAEMOGLOBINURIA
     Dosage: 600 MG, QW X 4 WEEKS
     Route: 042
     Dates: start: 20091002, end: 20090101
  2. SOLIRIS [Suspect]
     Dosage: 900 MG, Q2W
     Route: 042
     Dates: start: 20091030
  3. LEVOXYL [Concomitant]
     Dosage: 137 UG, QD
     Route: 048
  4. MEGACE [Concomitant]
     Route: 048
  5. LEVAQUIN [Concomitant]
     Indication: PNEUMONIA
     Dosage: 500 MG, QD
     Route: 048
     Dates: start: 20100201
  6. EXJADE [Concomitant]
     Dosage: 250 MG, QD
     Route: 048
  7. KLOR-CON [Concomitant]
     Dosage: 10 MEQ, UNK
     Route: 048
  8. LOPRESSOR [Concomitant]
     Dosage: 25 MG, BID
     Route: 048
  9. PHENERGAN HCL [Concomitant]
     Indication: NAUSEA
     Dosage: 25 MG, TID PRN
     Route: 048

REACTIONS (8)
  - ABDOMINAL PAIN UPPER [None]
  - ANAEMIA [None]
  - APPENDICITIS [None]
  - EPISTAXIS [None]
  - ILEUS [None]
  - INTESTINAL FUNCTIONAL DISORDER [None]
  - INTESTINAL OBSTRUCTION [None]
  - PANCREATITIS [None]
